FAERS Safety Report 8808626 (Version 1)
Quarter: 2012Q4

REPORT INFORMATION
  Report Type: Spontaneous
  Country: US (occurrence: None)
  Receive Date: 20120920
  Receipt Date: 20120920
  Transmission Date: 20130627
  Serious: Yes (Life-Threatening, Hospitalization)
  Sender: FDA-Public Use
  Company Number: None

PATIENT
  Sex: Male
  Weight: 64.37 kg

DRUGS (1)
  1. NAPROXEN [Suspect]
     Indication: PAIN
     Dosage: 1 tablet bid po
     Route: 048
     Dates: start: 20120523, end: 20120829

REACTIONS (2)
  - Gastrointestinal haemorrhage [None]
  - Gastric ulcer [None]
